FAERS Safety Report 25953166 (Version 1)
Quarter: 2025Q4

REPORT INFORMATION
  Report Type: Report from Study
  Country: EU (occurrence: EU)
  Receive Date: 20251023
  Receipt Date: 20251023
  Transmission Date: 20260117
  Serious: Yes (Other)
  Sender: ALEXION PHARMACEUTICALS
  Company Number: EU-ASTRAZENECA-202510GLO013905DE

PATIENT
  Age: 66 Year
  Sex: Male
  Weight: 86 kg

DRUGS (30)
  1. DURVALUMAB [Suspect]
     Active Substance: DURVALUMAB
     Indication: Bile duct cancer
     Dosage: 1500 MILLIGRAM
     Route: 065
     Dates: start: 20250131, end: 20250131
  2. DURVALUMAB [Suspect]
     Active Substance: DURVALUMAB
     Dosage: 1500 MILLIGRAM
     Route: 065
     Dates: start: 20250224, end: 20250224
  3. DURVALUMAB [Suspect]
     Active Substance: DURVALUMAB
     Dosage: 1500 MILLIGRAM
     Route: 065
     Dates: start: 20250317, end: 20250317
  4. DURVALUMAB [Suspect]
     Active Substance: DURVALUMAB
     Dosage: 1500 MILLIGRAM
     Route: 065
     Dates: start: 20250408, end: 20250408
  5. DURVALUMAB [Suspect]
     Active Substance: DURVALUMAB
     Dosage: 1500 MILLIGRAM
     Route: 065
     Dates: start: 20250505, end: 20250505
  6. DURVALUMAB [Suspect]
     Active Substance: DURVALUMAB
     Dosage: 1500 MILLIGRAM
     Route: 065
     Dates: start: 20250527, end: 20250527
  7. GEMCITABINE [Concomitant]
     Active Substance: GEMCITABINE
     Dosage: 1967 MILLIGRAM
     Route: 065
     Dates: start: 20250131, end: 20250131
  8. GEMCITABINE [Concomitant]
     Active Substance: GEMCITABINE
     Dosage: 1475.25 MILLIGRAM
     Route: 065
     Dates: start: 20250224, end: 20250224
  9. GEMCITABINE [Concomitant]
     Active Substance: GEMCITABINE
     Dosage: 1475.25 MILLIGRAM
     Route: 065
     Dates: start: 20250303, end: 20250303
  10. GEMCITABINE [Concomitant]
     Active Substance: GEMCITABINE
     Dosage: 1475.25 MILLIGRAM
     Route: 065
     Dates: start: 20250317, end: 20250317
  11. GEMCITABINE [Concomitant]
     Active Substance: GEMCITABINE
     Dosage: 1475.25 MILLIGRAM
     Route: 065
     Dates: start: 20250324, end: 20250324
  12. GEMCITABINE [Concomitant]
     Active Substance: GEMCITABINE
     Dosage: 1475.25 MILLIGRAM
     Route: 065
     Dates: start: 20250408, end: 20250408
  13. GEMCITABINE [Concomitant]
     Active Substance: GEMCITABINE
     Dosage: 1475.25 MILLIGRAM
     Route: 065
     Dates: start: 20250415, end: 20250415
  14. GEMCITABINE [Concomitant]
     Active Substance: GEMCITABINE
     Dosage: 1475.25 MILLIGRAM
     Route: 065
     Dates: start: 20250505, end: 20250505
  15. GEMCITABINE [Concomitant]
     Active Substance: GEMCITABINE
     Dosage: 1475.25 MILLIGRAM
     Route: 065
     Dates: start: 20250513, end: 20250513
  16. GEMCITABINE [Concomitant]
     Active Substance: GEMCITABINE
     Dosage: 1475.25 MILLIGRAM
     Route: 065
     Dates: start: 20250527, end: 20250527
  17. CISPLATIN [Concomitant]
     Active Substance: CISPLATIN
     Dosage: 49.18 MILLIGRAM
     Route: 065
     Dates: start: 20250131, end: 20250131
  18. CISPLATIN [Concomitant]
     Active Substance: CISPLATIN
     Dosage: 36.88 MILLIGRAM
     Route: 065
     Dates: start: 20250224, end: 20250224
  19. CISPLATIN [Concomitant]
     Active Substance: CISPLATIN
     Dosage: 26.88 MILLIGRAM
     Route: 065
     Dates: start: 20250303, end: 20250303
  20. CISPLATIN [Concomitant]
     Active Substance: CISPLATIN
     Dosage: 26.88 MILLIGRAM
     Route: 065
     Dates: start: 20250317, end: 20250317
  21. CISPLATIN [Concomitant]
     Active Substance: CISPLATIN
     Dosage: 36.88 MILLIGRAM
     Route: 065
     Dates: start: 20250324, end: 20250324
  22. CISPLATIN [Concomitant]
     Active Substance: CISPLATIN
     Dosage: 36.88 MILLIGRAM
     Route: 065
     Dates: start: 20250408, end: 20250408
  23. CISPLATIN [Concomitant]
     Active Substance: CISPLATIN
     Dosage: 36.88 MILLIGRAM
     Route: 065
     Dates: start: 20250415, end: 20250415
  24. CISPLATIN [Concomitant]
     Active Substance: CISPLATIN
     Dosage: 36.88 MILLIGRAM
     Route: 065
     Dates: start: 20250505, end: 20250505
  25. CISPLATIN [Concomitant]
     Active Substance: CISPLATIN
     Dosage: 36.88 MILLIGRAM
     Route: 065
     Dates: start: 20250513, end: 20250513
  26. CISPLATIN [Concomitant]
     Active Substance: CISPLATIN
     Dosage: 36.13 MILLIGRAM
     Route: 065
     Dates: start: 20250527, end: 20250527
  27. FLUOROURACIL\LEUCOVORIN CALCIUM\OXALIPLATIN [Concomitant]
     Active Substance: FLUOROURACIL\LEUCOVORIN CALCIUM\OXALIPLATIN
     Indication: Hepatobiliary cancer
     Dosage: UNK
     Route: 065
     Dates: start: 20250603, end: 20250603
  28. FLUOROURACIL\LEUCOVORIN CALCIUM\OXALIPLATIN [Concomitant]
     Active Substance: FLUOROURACIL\LEUCOVORIN CALCIUM\OXALIPLATIN
     Dosage: UNK
     Route: 065
     Dates: start: 20250616, end: 20250616
  29. FLUOROURACIL\LEUCOVORIN CALCIUM\OXALIPLATIN [Concomitant]
     Active Substance: FLUOROURACIL\LEUCOVORIN CALCIUM\OXALIPLATIN
     Dosage: UNK
     Route: 065
     Dates: start: 20250707, end: 20250707
  30. FLUOROURACIL\LEUCOVORIN CALCIUM\OXALIPLATIN [Concomitant]
     Active Substance: FLUOROURACIL\LEUCOVORIN CALCIUM\OXALIPLATIN
     Dosage: UNK
     Route: 065
     Dates: start: 20250729, end: 20250729

REACTIONS (1)
  - Leukopenia [Recovered/Resolved]

NARRATIVE: CASE EVENT DATE: 20250210
